FAERS Safety Report 12639272 (Version 12)
Quarter: 2017Q2

REPORT INFORMATION
  Report Type: Report from Study
  Country: US (occurrence: US)
  Receive Date: 20160810
  Receipt Date: 20170602
  Transmission Date: 20170830
  Serious: Yes (Hospitalization, Other)
  Sender: FDA-Public Use
  Company Number: US-ACTELION-A-US2016-140189

PATIENT
  Age: 38 Year
  Sex: Female
  Weight: 81.63 kg

DRUGS (7)
  1. OPSUMIT [Suspect]
     Active Substance: MACITENTAN
     Indication: PULMONARY ARTERIAL HYPERTENSION
     Dosage: 10 MG, QD
     Route: 048
     Dates: start: 20160224
  2. WARFARIN [Concomitant]
     Active Substance: WARFARIN
  3. VELETRI [Suspect]
     Active Substance: EPOPROSTENOL
     Dosage: 15 NG/KG, PER MIN
     Route: 042
     Dates: start: 20151008
  4. SILDENAFIL. [Concomitant]
     Active Substance: SILDENAFIL
  5. CITALOPRAM [Concomitant]
     Active Substance: CITALOPRAM HYDROBROMIDE
     Indication: ANXIETY
     Dosage: UNK
     Dates: start: 20151008
  6. VELETRI [Suspect]
     Active Substance: EPOPROSTENOL
     Indication: PULMONARY ARTERIAL HYPERTENSION
     Dosage: 18.75 NG/KG, PER MIN
     Route: 042
  7. VELETRI [Suspect]
     Active Substance: EPOPROSTENOL
     Dosage: 18.8 NG/KG, PER MIN
     Route: 042

REACTIONS (18)
  - Pain [Unknown]
  - Device related infection [Recovered/Resolved]
  - Catheter site discharge [Recovered/Resolved]
  - Catheter removal [Unknown]
  - Staphylococcal bacteraemia [Recovered/Resolved]
  - Catheter site pain [Recovered/Resolved]
  - Anxiety [Not Recovered/Not Resolved]
  - Septic shock [Unknown]
  - Weight decreased [Unknown]
  - Nausea [Unknown]
  - Device related infection [Unknown]
  - Blood culture positive [Recovered/Resolved]
  - Diarrhoea [Not Recovered/Not Resolved]
  - Pain in jaw [Unknown]
  - Migraine [Not Recovered/Not Resolved]
  - Nasal congestion [Unknown]
  - Non-cardiac chest pain [Recovered/Resolved]
  - Gastrointestinal disorder [Unknown]

NARRATIVE: CASE EVENT DATE: 20160718
